FAERS Safety Report 19328821 (Version 1)
Quarter: 2021Q2

REPORT INFORMATION
  Report Type: Spontaneous
  Country: RU (occurrence: RU)
  Receive Date: 20210528
  Receipt Date: 20210528
  Transmission Date: 20210717
  Serious: Yes (Hospitalization)
  Sender: FDA-Public Use
  Company Number: RU-BAYER-2021-146439

PATIENT
  Age: 41 Year
  Sex: Female
  Weight: 73 kg

DRUGS (2)
  1. YARINA PLUS [Suspect]
     Active Substance: DROSPIRENONE\ETHINYL ESTRADIOL\LEVOMEFOLATE CALCIUM
     Indication: CONTRACEPTION
     Dosage: UNK
     Route: 048
     Dates: start: 20210511, end: 20210520
  2. QLAIRA [Suspect]
     Active Substance: DIENOGEST\ESTRADIOL VALERATE
     Indication: CONTRACEPTION
     Dosage: UNK
     Route: 048
     Dates: start: 20210511, end: 20210520

REACTIONS (5)
  - Product use issue [None]
  - Pain in extremity [None]
  - Asthenia [None]
  - Dry mouth [None]
  - Peripheral swelling [None]

NARRATIVE: CASE EVENT DATE: 20210511
